FAERS Safety Report 7288807-7 (Version None)
Quarter: 2011Q1

REPORT INFORMATION
  Report Type: 
  Country: None (occurrence: None)
  Receive Date: 20110211
  Receipt Date: 20110204
  Transmission Date: 20110831
  Serious: Yes (Hospitalization)
  Sender: FDA-Public Use
  Company Number: US-MERCK-1010USA01163

PATIENT
  Age: 71 Year
  Sex: Female

DRUGS (3)
  1. ESTRADIOL [Concomitant]
     Indication: HORMONE THERAPY
     Route: 065
     Dates: start: 19840101
  2. ATENOLOL [Concomitant]
     Indication: CARDIAC DISORDER
     Route: 065
     Dates: start: 19880101
  3. FOSAMAX [Suspect]
     Indication: BONE DISORDER
     Route: 048
     Dates: start: 19981001, end: 20090401

REACTIONS (8)
  - CORONARY ARTERY DISEASE [None]
  - GASTROINTESTINAL DISORDER [None]
  - FEMUR FRACTURE [None]
  - BLOOD CHOLESTEROL INCREASED [None]
  - GASTROOESOPHAGEAL REFLUX DISEASE [None]
  - LOW TURNOVER OSTEOPATHY [None]
  - UPPER LIMB FRACTURE [None]
  - IMPAIRED HEALING [None]
